FAERS Safety Report 6691021-7 (Version None)
Quarter: 2010Q2

REPORT INFORMATION
  Report Type: 
  Country: None (occurrence: None)
  Receive Date: 20100421
  Receipt Date: 20100412
  Transmission Date: 20101027
  Serious: Yes (Hospitalization, Other)
  Sender: FDA-Public Use
  Company Number: US-AMGEN-QUU405938

PATIENT
  Sex: Female

DRUGS (3)
  1. ENBREL [Suspect]
     Indication: PSORIATIC ARTHROPATHY
     Route: 058
     Dates: start: 19981215
  2. IMURAN [Concomitant]
     Route: 048
  3. PREDNISONE TAB [Concomitant]

REACTIONS (6)
  - ABNORMAL WEIGHT GAIN [None]
  - CLOSTRIDIAL INFECTION [None]
  - FIBROMYALGIA [None]
  - NEUROPATHY PERIPHERAL [None]
  - PSORIATIC ARTHROPATHY [None]
  - SPINAL OSTEOARTHRITIS [None]
